FAERS Safety Report 26058307 (Version 1)
Quarter: 2025Q4

REPORT INFORMATION
  Report Type: Spontaneous
  Country: EU (occurrence: EU)
  Receive Date: 20251118
  Receipt Date: 20251118
  Transmission Date: 20260117
  Serious: Yes (Other)
  Sender: BIOGEN
  Company Number: EU-BIOGEN-2091128

PATIENT
  Age: 26 Year
  Sex: Female

DRUGS (1)
  1. TYSABRI [Suspect]
     Active Substance: NATALIZUMAB
     Indication: Multiple sclerosis
     Dosage: 26-FEB-2020: 1ST INFUSION OF TYSABRI 300 MG IV (17TH WP)?24-JUN-2020: FINAL ADMINISTRATION PRIOR TO DELIVERY (34 WP)?29-JUL-2020: FIRST POST-PARTUM ADMINISTRATION, ADMINISTERED 7 DAYS AFTER DELIVERY ?CONTINUED EXTENDED INTERVAL DOSING (EID) 6 WEEKS IV
     Dates: start: 20200226, end: 20200624

REACTIONS (3)
  - Caesarean section [Recovered/Resolved]
  - Maternal exposure during pregnancy [Recovered/Resolved]
  - Prescribed underdose [Not Recovered/Not Resolved]

NARRATIVE: CASE EVENT DATE: 20200226
